FAERS Safety Report 5314607-0 (Version None)
Quarter: 2007Q2

REPORT INFORMATION
  Report Type: 
  Country: None (occurrence: None)
  Receive Date: 20070426
  Receipt Date: 20070412
  Transmission Date: 20071010
  Serious: Yes (Hospitalization)
  Sender: FDA-Public Use
  Company Number: CHPA2007US04946

PATIENT
  Age: 69 Year
  Sex: Female

DRUGS (3)
  1. TRANSDERM SCOP [Suspect]
     Indication: POSTOPERATIVE CARE
     Dosage: 1.5 MG, ONCE/SINGLE, TRANSDERMAL
     Route: 062
     Dates: start: 20061205, end: 20061205
  2. ANAESTHETICS (NO INGREDIENTS/SUBSTANCES) [Suspect]
     Indication: ANAESTHESIA
     Dosage: EPIDURAL
     Route: 008
     Dates: start: 20061205
  3. SYNTHROID [Concomitant]

REACTIONS (2)
  - DEPRESSED LEVEL OF CONSCIOUSNESS [None]
  - UNRESPONSIVE TO STIMULI [None]
